FAERS Safety Report 7763382-9 (Version None)
Quarter: 2011Q3

REPORT INFORMATION
  Report Type: 
  Country: None (occurrence: None)
  Receive Date: 20110920
  Receipt Date: 20110907
  Transmission Date: 20111222
  Serious: Yes (Other)
  Sender: FDA-Public Use
  Company Number: PL-ASTELLAS-2011US005736

PATIENT
  Sex: Male

DRUGS (2)
  1. GEMZAR [Concomitant]
     Indication: PRODUCT USED FOR UNKNOWN INDICATION
     Dosage: UNK
     Route: 065
     Dates: start: 20101011, end: 20110218
  2. TARCEVA [Suspect]
     Indication: PRODUCT USED FOR UNKNOWN INDICATION
     Dosage: 100 MG, UID/QD
     Route: 048
     Dates: start: 20101011, end: 20101125

REACTIONS (5)
  - SKIN DISORDER [None]
  - PAIN [None]
  - DERMATITIS [None]
  - PRURITUS [None]
  - RASH FOLLICULAR [None]
